FAERS Safety Report 17389397 (Version 3)
Quarter: 2024Q4

REPORT INFORMATION
  Report Type: Report from Study
  Country: JP (occurrence: JP)
  Receive Date: 20200207
  Receipt Date: 20241003
  Transmission Date: 20250115
  Serious: Yes (Other)
  Sender: ABBVIE
  Company Number: JP-TAKEDA-2020TJP002313

PATIENT
  Age: 76 Year
  Sex: Male

DRUGS (14)
  1. LEUPROLIDE ACETATE [Suspect]
     Active Substance: LEUPROLIDE ACETATE
     Indication: Bulbospinal muscular atrophy congenital
     Dosage: FORM STRENGTH:11.25 MILLIGRAM, Q3MONTHS?FIRST DOSE
     Route: 058
     Dates: start: 20171225
  2. LEUPROLIDE ACETATE [Suspect]
     Active Substance: LEUPROLIDE ACETATE
     Dosage: SECOND DOSE
     Route: 058
     Dates: start: 20180319
  3. LEUPROLIDE ACETATE [Suspect]
     Active Substance: LEUPROLIDE ACETATE
     Dosage: THIRD DOSE
     Route: 058
     Dates: start: 20180611
  4. LEUPROLIDE ACETATE [Suspect]
     Active Substance: LEUPROLIDE ACETATE
     Dosage: FOURTH DOSE
     Route: 058
     Dates: start: 20180903
  5. LEUPROLIDE ACETATE [Suspect]
     Active Substance: LEUPROLIDE ACETATE
     Dosage: FIFTH DOSE
     Route: 058
     Dates: start: 20181126
  6. LEUPROLIDE ACETATE [Suspect]
     Active Substance: LEUPROLIDE ACETATE
     Dosage: SIXTH DOSE
     Route: 058
     Dates: start: 20190225
  7. LEUPROLIDE ACETATE [Suspect]
     Active Substance: LEUPROLIDE ACETATE
     Dosage: SEVENTH DOSE
     Route: 058
     Dates: start: 20190527
  8. LEUPROLIDE ACETATE [Suspect]
     Active Substance: LEUPROLIDE ACETATE
     Dosage: EIGHT DOSE
     Route: 058
     Dates: start: 20190826
  9. LEUPROLIDE ACETATE [Suspect]
     Active Substance: LEUPROLIDE ACETATE
     Dosage: NINTH DOSE
     Route: 058
     Dates: start: 20191125
  10. ROZEREM [Concomitant]
     Active Substance: RAMELTEON
     Indication: Product used for unknown indication
     Dosage: FORM STRENGTH:8 MILLIGRAM PER DAY
     Route: 065
     Dates: start: 20180319, end: 20181125
  11. MAGNESIUM OXIDE [Concomitant]
     Active Substance: MAGNESIUM OXIDE
     Indication: Product used for unknown indication
     Dosage: FORM STRENGTH:990 MILLIGRAM
     Route: 065
  12. LUNESTA [Concomitant]
     Active Substance: ESZOPICLONE
     Indication: Product used for unknown indication
     Dosage: FORM STRENGTH:1 MILLIGRAM PER DAY
     Route: 065
     Dates: start: 20180319, end: 20181125
  13. KETOPROFEN [Concomitant]
     Active Substance: KETOPROFEN
     Indication: Product used for unknown indication
     Dosage: FORM STRENGTH: 40 MILLIGRAM
     Route: 065
  14. AMITIZA [Concomitant]
     Active Substance: LUBIPROSTONE
     Indication: Product used for unknown indication
     Dosage: FORM STRENGTH:48 MICROGRAM
     Route: 065
     Dates: start: 20190826

REACTIONS (5)
  - Osteochondrosis [Unknown]
  - Constipation [Recovered/Resolved]
  - Middle insomnia [Recovered/Resolved]
  - Type 2 diabetes mellitus [Recovered/Resolved]
  - Dyslipidaemia [Unknown]

NARRATIVE: CASE EVENT DATE: 20180301
